FAERS Safety Report 4940855-5 (Version None)
Quarter: 2006Q1

REPORT INFORMATION
  Report Type: 
  Country: None (occurrence: None)
  Receive Date: 20060307
  Receipt Date: 20060220
  Transmission Date: 20060701
  Serious: Yes (Hospitalization, Other)
  Sender: FDA-Public Use
  Company Number: 2006AL000495

PATIENT
  Age: 68 Year
  Sex: Female

DRUGS (2)
  1. CLONIDINE HYDROCHLORIDE TABLETS USP, 0.3 MG (PUREPAC) (CLONIDINE HYDRO [Suspect]
     Indication: HYPERTENSION
     Dosage: PRN; PO
     Route: 048
  2. MOXIFLOXACIN HCL [Suspect]
     Dosage: 400 MG; BID; PO
     Route: 048

REACTIONS (10)
  - BLOOD PRESSURE INCREASED [None]
  - BRONCHITIS [None]
  - FANCONI SYNDROME [None]
  - GLYCOSURIA [None]
  - HAEMOGLOBIN DECREASED [None]
  - MALAISE [None]
  - NEPHRITIS INTERSTITIAL [None]
  - NOCTURIA [None]
  - RED BLOOD CELL SEDIMENTATION RATE INCREASED [None]
  - RENAL TUBULAR DISORDER [None]
